FAERS Safety Report 6889096-5 (Version None)
Quarter: 2010Q3

REPORT INFORMATION
  Report Type: 
  Country: None (occurrence: None)
  Receive Date: 20100730
  Receipt Date: 20080102
  Transmission Date: 20110219
  Serious: No
  Sender: FDA-Public Use
  Company Number: US-PFIZER INC-2007098969

PATIENT
  Sex: Male
  Weight: 133.81 kg

DRUGS (5)
  1. LIPITOR [Suspect]
     Indication: BLOOD CHOLESTEROL INCREASED
     Route: 048
     Dates: start: 20071124
  2. LIPITOR [Suspect]
     Indication: HYPERCHOLESTEROLAEMIA
  3. LIPITOR [Suspect]
     Indication: HIGH DENSITY LIPOPROTEIN DECREASED
  4. ALLOPURINOL [Concomitant]
     Indication: GOUT
     Route: 048
  5. MULTI-VITAMINS [Concomitant]

REACTIONS (3)
  - MUSCULOSKELETAL STIFFNESS [None]
  - MYALGIA [None]
  - PAIN IN EXTREMITY [None]
